FAERS Safety Report 7719151-9 (Version None)
Quarter: 2011Q3

REPORT INFORMATION
  Report Type: 
  Country: None (occurrence: None)
  Receive Date: 20110830
  Receipt Date: 20110824
  Transmission Date: 20111222
  Serious: Yes (Life-Threatening, Hospitalization, Other)
  Sender: FDA-Public Use
  Company Number: GB-ROXANE LABORATORIES, INC.-2011-RO-01186RO

PATIENT
  Age: 40 Year
  Sex: Male

DRUGS (1)
  1. METHADONE HCL [Suspect]
     Indication: DRUG REHABILITATION
     Dosage: 120 ML

REACTIONS (9)
  - SECONDARY HYPOGONADISM [None]
  - CARDIAC ARREST [None]
  - ELECTROCARDIOGRAM T WAVE INVERSION [None]
  - TROPONIN I INCREASED [None]
  - ELECTROCARDIOGRAM QT PROLONGED [None]
  - VENTRICULAR FIBRILLATION [None]
  - SINUS BRADYCARDIA [None]
  - HYPOKALAEMIA [None]
  - HYPOMAGNESAEMIA [None]
